FAERS Safety Report 9690045 (Version 3)
Quarter: 2013Q4

REPORT INFORMATION
  Report Type: Spontaneous
  Country: DK (occurrence: DK)
  Receive Date: 20131115
  Receipt Date: 20131206
  Transmission Date: 20140711
  Serious: Yes (Other)
  Sender: FDA-Public Use
  Company Number: DK-ROCHE-1301162

PATIENT
  Age: 48 Year
  Sex: Female

DRUGS (10)
  1. XELODA [Suspect]
     Indication: PRODUCT USED FOR UNKNOWN INDICATION
     Route: 065
     Dates: start: 201009
  2. HERCEPTIN [Suspect]
     Indication: PRODUCT USED FOR UNKNOWN INDICATION
     Dosage: IN COMBINATION WITH GEMCITABINE
     Route: 065
     Dates: start: 20120918
  3. HERCEPTIN [Suspect]
     Dosage: IN COMBINATION WITH ERIBULIN
     Route: 065
     Dates: start: 20130829
  4. 5-FLUOROURACIL [Suspect]
     Indication: PRODUCT USED FOR UNKNOWN INDICATION
     Dosage: CMF TREATMENT REGIMEN
     Route: 065
     Dates: start: 201106, end: 20111104
  5. TAXOL [Suspect]
     Indication: PRODUCT USED FOR UNKNOWN INDICATION
     Route: 065
     Dates: start: 20120110, end: 20120911
  6. ERIBULIN [Suspect]
     Indication: PRODUCT USED FOR UNKNOWN INDICATION
     Route: 065
     Dates: start: 20130829
  7. GEMCITABINE [Suspect]
     Indication: PRODUCT USED FOR UNKNOWN INDICATION
     Route: 065
     Dates: start: 20120918
  8. METHOTREXATE [Suspect]
     Indication: PRODUCT USED FOR UNKNOWN INDICATION
     Dosage: CMF TREATMENT REGIMEN
     Route: 065
     Dates: start: 201106, end: 20111104
  9. CYCLOPHOSPHAMIDE [Suspect]
     Indication: PRODUCT USED FOR UNKNOWN INDICATION
     Dosage: CMF TREATMENT REGIMEN
     Route: 065
     Dates: start: 201106, end: 20111104
  10. NAVELBINE [Concomitant]
     Route: 065
     Dates: start: 20111104, end: 20120106

REACTIONS (2)
  - Disease progression [Not Recovered/Not Resolved]
  - Hepatic steatosis [Unknown]
